FAERS Safety Report 14558991 (Version 1)
Quarter: 2018Q1

REPORT INFORMATION
  Report Type: Spontaneous
  Country: DE (occurrence: DE)
  Receive Date: 20180221
  Receipt Date: 20180221
  Transmission Date: 20180509
  Serious: Yes (Hospitalization)
  Sender: FDA-Public Use
  Company Number: DE-TEVA-2018-DE-858360

PATIENT
  Age: 92 Year
  Sex: Female

DRUGS (15)
  1. PIPAMPERON [Concomitant]
     Active Substance: PIPAMPERONE HYDROCHLORIDE
     Indication: RESTLESSNESS
     Dosage: DOSAGE FORM: UNSPECIFIED, IN EVENING
     Route: 048
     Dates: start: 20170302, end: 20170303
  2. METOPROLOL. [Suspect]
     Active Substance: METOPROLOL
     Indication: PRODUCT USED FOR UNKNOWN INDICATION
     Dosage: DOSAGE FORM: UNSPECIFIED
     Route: 048
     Dates: end: 20170305
  3. HALDOL [Suspect]
     Active Substance: HALOPERIDOL
     Indication: DEMENTIA
     Dosage: DOSAGE FORM: UNSPECIFIED
     Route: 065
     Dates: start: 20170302, end: 20170302
  4. LEVEMIR [Concomitant]
     Active Substance: INSULIN DETEMIR
     Route: 058
     Dates: end: 20170305
  5. ACETYLSALICYLIC ACID [Concomitant]
     Active Substance: ASPIRIN
     Dosage: DOSAGE FORM: UNSPECIFIED
     Route: 048
     Dates: start: 2014
  6. RAMIPRIL. [Suspect]
     Active Substance: RAMIPRIL
     Indication: PRODUCT USED FOR UNKNOWN INDICATION
     Dosage: DOSAGE FORM: UNSPECIFIED
     Route: 048
     Dates: end: 20170305
  7. AMLODIPINE [Suspect]
     Active Substance: AMLODIPINE BESYLATE
     Indication: PRODUCT USED FOR UNKNOWN INDICATION
     Dosage: DOSAGE FORM: UNSPECIFIED
     Route: 048
     Dates: end: 20170305
  8. HYDROCHLOROTHIAZIDE. [Suspect]
     Active Substance: HYDROCHLOROTHIAZIDE
     Indication: PRODUCT USED FOR UNKNOWN INDICATION
     Dosage: DOSAGE FORM: UNSPECIFIED
     Route: 048
     Dates: end: 20170305
  9. RISPERDAL [Suspect]
     Active Substance: RISPERIDONE
     Indication: DELIRIUM
     Dosage: DOSAGE FORM: UNSPECIFIED
     Route: 048
     Dates: start: 20170303, end: 20170305
  10. PROTHIPENDYL [Interacting]
     Active Substance: PROTHIPENDYL
     Indication: PRODUCT USED FOR UNKNOWN INDICATION
     Dosage: DOSAGE FORM: UNSPECIFIED
     Route: 048
     Dates: start: 20170214, end: 20170305
  11. PIPAMPERON [Concomitant]
     Active Substance: PIPAMPERONE HYDROCHLORIDE
     Dosage: DOSAGE FORM: UNSPECIFIED, IN EVENING
     Route: 048
     Dates: start: 20170305
  12. ATORVASTATIN [Concomitant]
     Active Substance: ATORVASTATIN
     Dosage: DOSAGE FORM: UNSPECIFIED
     Route: 048
     Dates: start: 2014
  13. RISPERDAL [Suspect]
     Active Substance: RISPERIDONE
     Indication: DEMENTIA
  14. ACTRAPID [Concomitant]
     Active Substance: INSULIN HUMAN
     Route: 058
     Dates: end: 20170305
  15. HALDOL [Suspect]
     Active Substance: HALOPERIDOL
     Indication: DELIRIUM
     Dosage: DOSAGE FORM: UNSPECIFIED
     Route: 065
     Dates: start: 20170301, end: 20170301

REACTIONS (6)
  - Cardiogenic shock [Unknown]
  - Drug interaction [Unknown]
  - Bradycardia [Unknown]
  - Acute myocardial infarction [Unknown]
  - Myocardial infarction [Unknown]
  - Hypotension [Unknown]

NARRATIVE: CASE EVENT DATE: 201703
